FAERS Safety Report 8021964-3 (Version None)
Quarter: 2012Q1

REPORT INFORMATION
  Report Type: 
  Country: None (occurrence: None)
  Receive Date: 20120104
  Receipt Date: 20111229
  Transmission Date: 20120608
  Serious: Yes (Hospitalization)
  Sender: FDA-Public Use
  Company Number: PHHO2011US00479

PATIENT
  Sex: Female

DRUGS (5)
  1. MYCOPHENOLATE MOFETIL [Suspect]
     Indication: RENAL TRANSPLANT
     Dosage: 1000 MG, BID
     Route: 048
     Dates: start: 20101104
  2. PREDNISONE TAB [Suspect]
     Dosage: 5 MG, QD
     Route: 048
     Dates: start: 20111104
  3. PROGRAF [Suspect]
     Indication: RENAL TRANSPLANT
     Dosage: 3 MG AM, 4 MG PM
     Route: 048
     Dates: start: 20101104
  4. PROGRAF [Suspect]
     Dosage: 3 MG, BID
     Route: 048
     Dates: start: 20111104
  5. PREDNISONE TAB [Suspect]
     Indication: RENAL TRANSPLANT
     Dosage: 7.5 MG, BID
     Route: 048
     Dates: start: 20101104

REACTIONS (3)
  - DIARRHOEA [None]
  - COLITIS [None]
  - GASTROENTERITIS [None]
